FAERS Safety Report 16079990 (Version 1)
Quarter: 2019Q1

REPORT INFORMATION
  Report Type: Report from Study
  Country: None (occurrence: BR)
  Receive Date: 20190315
  Receipt Date: 20190315
  Transmission Date: 20190418
  Serious: Yes (Other)
  Sender: FDA-Public Use
  Company Number: BR-UNICHEM PHARMACEUTICALS (USA) INC-UCM201903-000102

PATIENT
  Age: 8 Year
  Sex: Female

DRUGS (6)
  1. VANCOMYCIN [Suspect]
     Active Substance: VANCOMYCIN
  2. TRIMETHOPRIM- SULFAMETHOXAZOLE [Suspect]
     Active Substance: SULFAMETHOXAZOLE\TRIMETHOPRIM
  3. MEROPENEM. [Suspect]
     Active Substance: MEROPENEM
  4. METRONIDAZOLE. [Suspect]
     Active Substance: METRONIDAZOLE
  5. MICAFUNGIN. [Suspect]
     Active Substance: MICAFUNGIN SODIUM
  6. METHYLPREDNISOLONE. [Concomitant]
     Active Substance: METHYLPREDNISOLONE
     Dosage: 2 MG/KG/DAY

REACTIONS (2)
  - Acute generalised exanthematous pustulosis [Not Recovered/Not Resolved]
  - Toxic epidermal necrolysis [Unknown]
